FAERS Safety Report 8799695 (Version 2)
Quarter: 2013Q4

REPORT INFORMATION
  Report Type: Spontaneous
  Country: US (occurrence: US)
  Receive Date: 20120919
  Receipt Date: 20131031
  Transmission Date: 20140711
  Serious: Yes (Other)
  Sender: FDA-Public Use
  Company Number: US-MERCK-1209USA003386

PATIENT
  Age: 58 Year
  Sex: Female

DRUGS (7)
  1. JANUVIA [Suspect]
     Dosage: UNK
     Dates: start: 201109, end: 201208
  2. LIPITOR [Suspect]
     Dosage: UNK
     Dates: start: 2012, end: 201208
  3. ARAVA [Suspect]
     Indication: ARTHRITIS
     Dosage: 20 MG, QD
     Route: 048
     Dates: start: 1996, end: 2010
  4. ARAVA [Suspect]
     Dosage: 20 MG, QD
     Route: 048
     Dates: start: 201204
  5. LEFLUNOMIDE [Suspect]
     Dosage: UNK
     Dates: start: 1996, end: 2010
  6. LEFLUNOMIDE [Suspect]
     Dosage: 20 MG, UNK
     Dates: start: 201204
  7. METFORMIN [Concomitant]
     Dosage: UNK

REACTIONS (6)
  - Blood alkaline phosphatase increased [Unknown]
  - Alanine aminotransferase increased [Unknown]
  - Aspartate aminotransferase increased [Unknown]
  - Staphylococcal infection [Unknown]
  - Hepatic steatosis [Unknown]
  - Surgery [Unknown]
